FAERS Safety Report 24651334 (Version 1)
Quarter: 2024Q4

REPORT INFORMATION
  Report Type: Spontaneous
  Country: FR (occurrence: FR)
  Receive Date: 20241122
  Receipt Date: 20241122
  Transmission Date: 20250115
  Serious: Yes (Hospitalization)
  Sender: ACCORD
  Company Number: None

PATIENT
  Age: 68 Year
  Sex: Female
  Weight: 70 kg

DRUGS (4)
  1. CARBOPLATIN [Suspect]
     Active Substance: CARBOPLATIN
     Indication: Endometrial cancer metastatic
     Dosage: C3
     Dates: start: 202407
  2. PACLITAXEL [Suspect]
     Active Substance: PACLITAXEL
     Indication: Endometrial cancer metastatic
     Dosage: C3
     Dates: start: 202407
  3. DOSTARLIMAB [Suspect]
     Active Substance: DOSTARLIMAB
     Indication: Endometrial cancer metastatic
     Dosage: C3, STRENGTH: 500 MG, CONCENTRATE FOR SOLUTION FOR INFUSION
     Dates: start: 202407
  4. FILGRASTIM [Suspect]
     Active Substance: FILGRASTIM
     Indication: Neutropenia
     Dosage: C3, STRENGTH: 30 MU/0.5 ML, SOLUTION FOR INJECTION
     Dates: start: 202407

REACTIONS (1)
  - Aortitis [Recovered/Resolved]

NARRATIVE: CASE EVENT DATE: 20240917
